FAERS Safety Report 15587426 (Version 1)
Quarter: 2018Q4

REPORT INFORMATION
  Report Type: Spontaneous
  Country: JP (occurrence: JP)
  Receive Date: 20181105
  Receipt Date: 20181105
  Transmission Date: 20190205
  Serious: Yes (Death)
  Sender: FDA-Public Use
  Company Number: JP-CELGENEUS-JPN-20181100439

PATIENT
  Age: 48 Year
  Sex: Male

DRUGS (2)
  1. REVLIMID [Suspect]
     Active Substance: LENALIDOMIDE
     Indication: CARDIAC AMYLOIDOSIS
     Dosage: UNKNOWN
     Route: 048
     Dates: start: 20180911, end: 20180922
  2. LENADEX [Suspect]
     Active Substance: DEXAMETHASONE ACETATE
     Indication: CARDIAC AMYLOIDOSIS
     Dosage: UNKNOWN
     Route: 048
     Dates: start: 20180911, end: 20180922

REACTIONS (4)
  - Cardio-respiratory arrest [Fatal]
  - Syncope [Fatal]
  - Cardiac amyloidosis [Fatal]
  - Ventricular tachycardia [Fatal]

NARRATIVE: CASE EVENT DATE: 20180913
